FAERS Safety Report 9454573 (Version 1)
Quarter: 2013Q3

REPORT INFORMATION
  Report Type: Spontaneous
  Country: US (occurrence: None)
  Receive Date: 20130808
  Receipt Date: 20130808
  Transmission Date: 20140515
  Serious: Yes (Other)
  Sender: FDA-Public Use
  Company Number: 304900228-AKO-5227

PATIENT
  Age: 78 Year
  Sex: Female

DRUGS (1)
  1. THERATEARS [Suspect]
     Indication: DRY EYE
     Dosage: 1 DROP / 1 DAY/ TOPICAL
     Route: 061
     Dates: start: 20130722, end: 20130723

REACTIONS (2)
  - Foreign body sensation in eyes [None]
  - Eye disorder [None]
